FAERS Safety Report 14036861 (Version 2)
Quarter: 2017Q4

REPORT INFORMATION
  Report Type: Report from Study
  Country: None (occurrence: CA)
  Receive Date: 20171004
  Receipt Date: 20171030
  Transmission Date: 20180321
  Serious: Yes (Hospitalization, Other)
  Sender: FDA-Public Use
  Company Number: CA-ABBVIE-17K-028-2116639-00

PATIENT
  Age: 72 Year
  Sex: Female

DRUGS (3)
  1. HUMIRA [Suspect]
     Active Substance: ADALIMUMAB
     Route: 058
     Dates: start: 2017
  2. METFORMIN [Suspect]
     Active Substance: METFORMIN HYDROCHLORIDE
     Indication: TYPE 2 DIABETES MELLITUS
     Route: 048
     Dates: start: 201612, end: 2017
  3. HUMIRA [Suspect]
     Active Substance: ADALIMUMAB
     Indication: RHEUMATOID ARTHRITIS
     Route: 058
     Dates: start: 20080103, end: 2017

REACTIONS (11)
  - Decreased appetite [Recovered/Resolved]
  - Type 2 diabetes mellitus [Not Recovered/Not Resolved]
  - Urticaria [Not Recovered/Not Resolved]
  - Cataract [Not Recovered/Not Resolved]
  - Dehydration [Recovered/Resolved]
  - Nausea [Recovered/Resolved]
  - Diarrhoea [Recovered/Resolved]
  - Retinal tear [Unknown]
  - Therapeutic response shortened [Not Recovered/Not Resolved]
  - Arthralgia [Not Recovered/Not Resolved]
  - Retinal tear [Unknown]

NARRATIVE: CASE EVENT DATE: 2013
